FAERS Safety Report 6152819-7 (Version None)
Quarter: 2009Q2

REPORT INFORMATION
  Report Type: 
  Country: None (occurrence: None)
  Receive Date: 20090413
  Receipt Date: 20090331
  Transmission Date: 20091009
  Serious: Yes (Disabling, Other)
  Sender: FDA-Public Use
  Company Number: PHHY2009DE06791

PATIENT
  Age: 49 Year
  Weight: 102 kg

DRUGS (5)
  1. MYFORTIC [Suspect]
     Indication: GLOMERULONEPHRITIS MINIMAL LESION
     Dosage: 720 MG/DAY
     Route: 048
  2. MYFORTIC [Suspect]
     Dosage: 180 MG, BID
  3. MYFORTIC [Suspect]
     Dosage: 360 MG, BID
  4. DIOVAN HCT [Suspect]
     Indication: HYPERTENSION
     Dosage: 1DOSAGE FORM PER DAY
     Route: 048
     Dates: start: 20060101
  5. TORASEMIDE [Concomitant]
     Indication: OEDEMA
     Dosage: UNK
     Route: 048
     Dates: start: 20060101

REACTIONS (29)
  - ABDOMINAL PAIN [None]
  - ALOPECIA [None]
  - ARTHRALGIA [None]
  - BLOOD CHOLESTEROL INCREASED [None]
  - BLOOD PRESSURE INCREASED [None]
  - BLOOD TRIGLYCERIDES INCREASED [None]
  - BONE INFARCTION [None]
  - BREATH ODOUR [None]
  - BRONCHOSPASM [None]
  - CONSTIPATION [None]
  - COUGH [None]
  - DIARRHOEA [None]
  - ERUCTATION [None]
  - FAECES PALE [None]
  - FLATULENCE [None]
  - FUNGAL INFECTION [None]
  - GINGIVAL ULCERATION [None]
  - HYPERLIPIDAEMIA [None]
  - MIGRAINE [None]
  - MOUTH ULCERATION [None]
  - MYALGIA [None]
  - NAUSEA [None]
  - OEDEMA [None]
  - PAIN [None]
  - PROTEINURIA [None]
  - PRURITUS [None]
  - RASH [None]
  - SKIN DISORDER [None]
  - VISION BLURRED [None]
